FAERS Safety Report 18806943 (Version 1)
Quarter: 2021Q1

REPORT INFORMATION
  Report Type: Spontaneous
  Country: US (occurrence: US)
  Receive Date: 20210128
  Receipt Date: 20210128
  Transmission Date: 20210419
  Serious: No
  Sender: FDA-Public Use
  Company Number: None

PATIENT
  Age: 37 Year
  Sex: Female
  Weight: 81.45 kg

DRUGS (6)
  1. TEMOZOLOMIDE. [Suspect]
     Active Substance: TEMOZOLOMIDE
     Indication: BRAIN NEOPLASM MALIGNANT
     Dosage: ?          OTHER FREQUENCY:QD ON DAYS 1?5/28;?
     Route: 048
     Dates: start: 20200826, end: 20210128
  2. KEPPRA [Concomitant]
     Active Substance: LEVETIRACETAM
  3. MULTIVITAMINS [Concomitant]
     Active Substance: VITAMINS
  4. BACTRIM DS 800?160MG [Concomitant]
  5. CARVEDILOL 12.5MG [Concomitant]
     Active Substance: CARVEDILOL
  6. ONDANSETRON 8MG [Concomitant]
     Active Substance: ONDANSETRON

REACTIONS (1)
  - Disease progression [None]

NARRATIVE: CASE EVENT DATE: 20210128
